FAERS Safety Report 5422905-5 (Version None)
Quarter: 2007Q3

REPORT INFORMATION
  Report Type: 
  Country: None (occurrence: None)
  Receive Date: 20070822
  Receipt Date: 20070810
  Transmission Date: 20080115
  Serious: Yes (Other)
  Sender: FDA-Public Use
  Company Number: US-PFIZER INC-2006117128

PATIENT
  Sex: Female
  Weight: 75.3 kg

DRUGS (5)
  1. DOSTINEX [Suspect]
     Indication: HYPERPROLACTINAEMIA
  2. BROMOCRIPTINE MESYLATE [Suspect]
     Indication: HYPERPROLACTINAEMIA
  3. CABERGOLINE [Suspect]
  4. ANTIHYPERTENSIVES [Concomitant]
  5. ALL OTHER THERAPEUTIC PRODUCTS [Concomitant]

REACTIONS (7)
  - BLOOD PROLACTIN INCREASED [None]
  - DRUG EFFECT DECREASED [None]
  - HEADACHE [None]
  - HEART RATE INCREASED [None]
  - HYPERTENSION [None]
  - NAUSEA [None]
  - VOMITING [None]
